FAERS Safety Report 8290078-X (Version None)
Quarter: 2012Q2

REPORT INFORMATION
  Report Type: 
  Country: None (occurrence: None)
  Receive Date: 20120417
  Receipt Date: 20120413
  Transmission Date: 20120825
  Serious: No
  Sender: FDA-Public Use
  Company Number: US-PFIZER INC-2012092767

PATIENT

DRUGS (1)
  1. LYRICA [Suspect]

REACTIONS (1)
  - WITHDRAWAL SYNDROME [None]
